FAERS Safety Report 6126704-0 (Version None)
Quarter: 2009Q1

REPORT INFORMATION
  Report Type: 
  Country: None (occurrence: None)
  Receive Date: 20090320
  Receipt Date: 20090318
  Transmission Date: 20090719
  Serious: Yes (Life-Threatening, Hospitalization, Other)
  Sender: FDA-Public Use
  Company Number: PHHY2009GB08855

PATIENT
  Sex: Male

DRUGS (5)
  1. CLOZARIL [Suspect]
     Indication: SCHIZOAFFECTIVE DISORDER
     Dosage: 100 MG DAILY
     Dates: start: 20081111
  2. CLOZARIL [Suspect]
     Indication: MOVEMENT DISORDER
     Dosage: 62.5 MG DAILY
  3. VALPROATE SODIUM [Concomitant]
     Dosage: 1500 MG DAILY
  4. CLONAZEPAM [Concomitant]
     Dosage: 3 MG DAILY
  5. CLONAZEPAM [Concomitant]
     Dosage: UNK

REACTIONS (10)
  - BRADYCARDIA [None]
  - CONVULSION [None]
  - DEHYDRATION [None]
  - GENERAL PHYSICAL HEALTH DETERIORATION [None]
  - HEART RATE DECREASED [None]
  - HYPERHIDROSIS [None]
  - HYPOTENSION [None]
  - LOWER RESPIRATORY TRACT INFECTION [None]
  - SEDATION [None]
  - URINARY TRACT INFECTION [None]
